FAERS Safety Report 4414105-2 (Version None)
Quarter: 2004Q3

REPORT INFORMATION
  Report Type: 
  Country: None (occurrence: None)
  Receive Date: 20040728
  Receipt Date: 20040715
  Transmission Date: 20050211
  Serious: No
  Sender: FDA-Public Use
  Company Number: 04P-062-0267480-00

PATIENT
  Age: 66 Year
  Sex: Female

DRUGS (2)
  1. HUMIRA [Suspect]
     Dosage: 40 MG, SUBCUTANEOUS
     Route: 058
     Dates: start: 20040301
  2. METHOTREXATE SODIUM [Concomitant]

REACTIONS (3)
  - CONJUNCTIVITIS [None]
  - EYE INFECTION [None]
  - LENS DISORDER [None]
